FAERS Safety Report 9921053 (Version 1)
Quarter: 2014Q1

REPORT INFORMATION
  Report Type: Spontaneous
  Country: US (occurrence: US)
  Receive Date: 20140225
  Receipt Date: 20140225
  Transmission Date: 20141002
  Serious: Yes (Death)
  Sender: FDA-Public Use
  Company Number: US-BRISTOL-MYERS SQUIBB COMPANY-20227443

PATIENT
  Sex: Female

DRUGS (3)
  1. BYETTA [Suspect]
     Dates: start: 200609, end: 200910
  2. JANUMET [Suspect]
     Dates: start: 2010, end: 2011
  3. VICTOZA [Suspect]
     Dates: start: 2010, end: 2011

REACTIONS (1)
  - Pancreatic carcinoma [Fatal]
